FAERS Safety Report 5483134-2 (Version None)
Quarter: 2007Q4

REPORT INFORMATION
  Report Type: 
  Country: None (occurrence: None)
  Receive Date: 20071005
  Receipt Date: 20070921
  Transmission Date: 20080405
  Serious: Yes (Other)
  Sender: FDA-Public Use
  Company Number: CLOF-10691

PATIENT
  Sex: Female

DRUGS (2)
  1. CLOFARABINE. MFR: GENZYME [Suspect]
     Indication: DRUG USE FOR UNKNOWN INDICATION
     Dosage: 52 MG/M2
     Dates: start: 20070824, end: 20070830
  2. CYTARABINE [Suspect]
     Indication: DRUG USE FOR UNKNOWN INDICATION

REACTIONS (5)
  - DISEASE PROGRESSION [None]
  - GENERAL PHYSICAL HEALTH DETERIORATION [None]
  - NO THERAPEUTIC RESPONSE [None]
  - PANCYTOPENIA [None]
  - SYSTEMIC MYCOSIS [None]
